FAERS Safety Report 11941783 (Version 1)
Quarter: 2016Q1

REPORT INFORMATION
  Report Type: Report from Study
  Country: DE (occurrence: DE)
  Receive Date: 20160123
  Receipt Date: 20160123
  Transmission Date: 20160526
  Serious: Yes (Hospitalization)
  Sender: FDA-Public Use
  Company Number: DE-BIOGEN-2015BI154580

PATIENT
  Age: 31 Year
  Sex: Female

DRUGS (4)
  1. SULPIRID [Concomitant]
     Active Substance: SULPIRIDE
     Indication: PRODUCT USED FOR UNKNOWN INDICATION
     Route: 065
     Dates: start: 20150821
  2. TECFIDERA [Suspect]
     Active Substance: DIMETHYL FUMARATE
     Indication: MULTIPLE SCLEROSIS
     Route: 048
     Dates: start: 20150919
  3. ACETYLSALICYLIC ACID [Concomitant]
     Active Substance: ASPIRIN
     Indication: PROPHYLAXIS
     Route: 065
     Dates: start: 20150919
  4. CITALOPRAM [Concomitant]
     Active Substance: CITALOPRAM HYDROBROMIDE
     Indication: DEPRESSION
     Route: 065
     Dates: start: 20150223

REACTIONS (10)
  - Cardiovascular disorder [Recovered/Resolved]
  - Abasia [Recovered/Resolved]
  - Dyspnoea [Recovered/Resolved]
  - Underdose [Not Recovered/Not Resolved]
  - Anxiety [Recovered/Resolved]
  - Abdominal pain upper [Recovered/Resolved]
  - Feeling hot [Recovered/Resolved]
  - Visual impairment [Recovered/Resolved]
  - Hot flush [Recovered/Resolved]
  - Erythema [Recovered/Resolved]

NARRATIVE: CASE EVENT DATE: 20150919
